FAERS Safety Report 23101240 (Version 3)
Quarter: 2023Q4

REPORT INFORMATION
  Report Type: Spontaneous
  Country: ZA (occurrence: ZA)
  Receive Date: 20231024
  Receipt Date: 20231110
  Transmission Date: 20240110
  Serious: Yes (Death)
  Sender: FDA-Public Use
  Company Number: ZA-AMERICAN REGENT INC-2023002468

PATIENT
  Age: 71 Year
  Sex: Female

DRUGS (1)
  1. VENOFER [Suspect]
     Active Substance: IRON SUCROSE
     Indication: Iron deficiency anaemia
     Dosage: 1ST INFUSION (200 MG)
     Dates: start: 20230920, end: 20230920

REACTIONS (1)
  - Death [Fatal]

NARRATIVE: CASE EVENT DATE: 20231008
